FAERS Safety Report 6959736-0 (Version None)
Quarter: 2010Q3

REPORT INFORMATION
  Report Type: 
  Country: None (occurrence: None)
  Receive Date: 20100901
  Receipt Date: 20100824
  Transmission Date: 20110219
  Serious: No
  Sender: FDA-Public Use
  Company Number: US-BIOGENIDEC-2010BI024263

PATIENT
  Age: 62 Year
  Sex: Male

DRUGS (1)
  1. TYSABRI [Suspect]
     Indication: CROHN'S DISEASE
     Route: 042
     Dates: start: 20100503, end: 20100101

REACTIONS (6)
  - FATIGUE [None]
  - GINGIVAL INFECTION [None]
  - HEADACHE [None]
  - HYPERSENSITIVITY [None]
  - TOOTH ABSCESS [None]
  - TOOTH INFECTION [None]
